FAERS Safety Report 7714586 (Version 4)
Quarter: 2019Q1

REPORT INFORMATION
  Report Type: Spontaneous
  Country: FR (occurrence: FR)
  Receive Date: 20101216
  Receipt Date: 20190211
  Transmission Date: 20190418
  Serious: Yes (Hospitalization, Other)
  Sender: FDA-Public Use
  Company Number: FR-BRISTOL-MYERS SQUIBB COMPANY-15435316

PATIENT
  Age: 37 Year
  Sex: Female
  Weight: 83 kg

DRUGS (3)
  1. ORENCIA [Suspect]
     Active Substance: ABATACEPT
     Indication: PSORIATIC ARTHROPATHY
     Dosage: INF DATES-28APR,(MID)MAY10,28MAY10,25JUN10,02AUG10,30AUG10,24SEP10,20OCT10,14MAR11  INF-11
     Route: 042
     Dates: start: 20100428
  2. HUMIRA [Suspect]
     Active Substance: ADALIMUMAB
     Indication: PSORIATIC ARTHROPATHY
     Dosage: ALSO TAKEN FROM SEP2009-FEB10
     Route: 058
     Dates: start: 20091023, end: 20100225
  3. ENBREL [Suspect]
     Active Substance: ETANERCEPT
     Indication: PSORIATIC ARTHROPATHY
     Dosage: UNK UNK, QWK
     Route: 058
     Dates: start: 20100225, end: 20100325

REACTIONS (6)
  - Scleritis [Recovered/Resolved]
  - Influenza like illness [Not Recovered/Not Resolved]
  - Diarrhoea [Recovering/Resolving]
  - Back pain [Not Recovered/Not Resolved]
  - Abdominal pain [Recovering/Resolving]
  - Psoriasis [Not Recovered/Not Resolved]

NARRATIVE: CASE EVENT DATE: 2010
